FAERS Safety Report 17516782 (Version 1)
Quarter: 2020Q1

REPORT INFORMATION
  Report Type: Spontaneous
  Country: US (occurrence: US)
  Receive Date: 20200306
  Receipt Date: 20200306
  Transmission Date: 20200409
  Serious: Yes (Other)
  Sender: FDA-Public Use
  Company Number: None

PATIENT
  Age: 10 Year
  Sex: Male
  Weight: 31.5 kg

DRUGS (5)
  1. FLUTICASONE PROPIONATE NASAL SPRAY 50 MCG [Concomitant]
     Active Substance: FLUTICASONE PROPIONATE
  2. VITAMIN D [Concomitant]
     Active Substance: VITAMIN D NOS
  3. FLOVENT 110MCG INHALER [Concomitant]
  4. MONTELUKAST [Suspect]
     Active Substance: MONTELUKAST SODIUM
     Indication: ASTHMA
     Route: 048
     Dates: start: 20170101, end: 20181201
  5. ALBUTEROL 90MCG INHALER [Concomitant]

REACTIONS (3)
  - Suicidal behaviour [None]
  - Product substitution issue [None]
  - Suicidal ideation [None]

NARRATIVE: CASE EVENT DATE: 20200101
